FAERS Safety Report 5775464-1 (Version None)
Quarter: 2008Q2

REPORT INFORMATION
  Report Type: 
  Country: None (occurrence: None)
  Receive Date: 20080612
  Receipt Date: 20080529
  Transmission Date: 20081010
  Serious: Yes (Hospitalization)
  Sender: FDA-Public Use
  Company Number: 2008BI009617

PATIENT
  Age: 33 Year
  Sex: Female

DRUGS (1)
  1. AVONEX [Suspect]
     Indication: RELAPSING-REMITTING MULTIPLE SCLEROSIS
     Dosage: 30 UG; ; IM
     Route: 030
     Dates: start: 20011115, end: 20050504

REACTIONS (3)
  - METASTASIS [None]
  - UTERINE LEIOMYOMA [None]
  - VIRAEMIA [None]
